FAERS Safety Report 7057762-7 (Version None)
Quarter: 2010Q4

REPORT INFORMATION
  Report Type: 
  Country: None (occurrence: None)
  Receive Date: 20101022
  Receipt Date: 20101011
  Transmission Date: 20110411
  Serious: Yes (Other)
  Sender: FDA-Public Use
  Company Number: US-PFIZER INC-2010129960

PATIENT
  Age: 24 Year
  Sex: Male

DRUGS (4)
  1. GEODON [Interacting]
     Dosage: 20 MG, 2X/DAY
     Dates: start: 20100416, end: 20100101
  2. GEODON [Interacting]
     Dosage: 40 MG, 2X/DAY
     Dates: start: 20100101
  3. SERTRALINE HYDROCHLORIDE [Interacting]
     Dosage: 200 MG, UNK
     Dates: start: 20100323
  4. ABILIFY [Suspect]
     Dosage: UNK

REACTIONS (2)
  - DRUG INTERACTION [None]
  - SEROTONIN SYNDROME [None]
